FAERS Safety Report 17359908 (Version 1)
Quarter: 2020Q1

REPORT INFORMATION
  Report Type: Report from Study
  Country: IT (occurrence: IT)
  Receive Date: 20200203
  Receipt Date: 20200203
  Transmission Date: 20200409
  Serious: Yes (Other)
  Sender: FDA-Public Use
  Company Number: IT-ACCORD-171407

PATIENT
  Age: 71 Year
  Sex: Female

DRUGS (7)
  1. ERIBULIN MESYLATE [Concomitant]
     Active Substance: ERIBULIN MESYLATE
     Dosage: STRENGTH-0.44 MG / ML
  2. ONKOTRONE [Suspect]
     Active Substance: MITOXANTRONE HYDROCHLORIDE
     Indication: PRODUCT USED FOR UNKNOWN INDICATION
     Dosage: STRENGTH- 10 MG
     Dates: start: 20180919
  3. METHOTREXATE (METHOTREXATE SODIUM) [Suspect]
     Active Substance: METHOTREXATE SODIUM
     Indication: METASTASES TO BONE
     Dosage: STRENGTH-100 MG / ML
     Dates: start: 20180919
  4. ABBA [Concomitant]
  5. TRAMADOLO ABC [Concomitant]
  6. PLASIL [Concomitant]
     Active Substance: METOCLOPRAMIDE HYDROCHLORIDE
  7. MITOMYCINS ACCORD HEALTHCARE [Suspect]
     Active Substance: MITOMYCIN
     Indication: PRODUCT USED FOR UNKNOWN INDICATION
     Dates: start: 20180919

REACTIONS (5)
  - Conjunctivitis [Unknown]
  - Nausea [Unknown]
  - Asthenia [Unknown]
  - Neutropenia [Unknown]
  - Paraesthesia [Unknown]

NARRATIVE: CASE EVENT DATE: 20181020
